FAERS Safety Report 25880377 (Version 1)
Quarter: 2025Q4

REPORT INFORMATION
  Report Type: Spontaneous
  Country: GB (occurrence: GB)
  Receive Date: 20251004
  Receipt Date: 20251004
  Transmission Date: 20260117
  Serious: Yes (Other)
  Sender: AUROBINDO
  Company Number: GB-MHRA-MED-202509222127482270-KDGTN

PATIENT
  Age: 33 Year
  Sex: Male

DRUGS (2)
  1. LAMOTRIGINE [Suspect]
     Active Substance: LAMOTRIGINE
     Indication: Bipolar disorder
     Dosage: 50MG ONE A DAY AT NIGHT, INCREASED FROM 25MG ONCE A DAY AT NIGHT.
     Route: 065
  2. CITALOPRAM [Concomitant]
     Active Substance: CITALOPRAM
     Indication: Bipolar disorder
     Dosage: UNK
     Route: 065
     Dates: start: 2012

REACTIONS (2)
  - Hypomania [Recovering/Resolving]
  - Rash [Recovering/Resolving]

NARRATIVE: CASE EVENT DATE: 20250906
